FAERS Safety Report 18398728 (Version 3)
Quarter: 2022Q1

REPORT INFORMATION
  Report Type: Spontaneous
  Country: US (occurrence: US)
  Receive Date: 20201019
  Receipt Date: 20220222
  Transmission Date: 20220423
  Serious: No
  Sender: FDA-Public Use
  Company Number: US-PFIZER INC-2019202390

PATIENT
  Age: 84 Year
  Sex: Male
  Weight: 88.45 kg

DRUGS (4)
  1. LYRICA [Suspect]
     Active Substance: PREGABALIN
     Indication: Pain
     Dosage: 50 MG, 2X/DAY
     Route: 048
     Dates: start: 201901
  2. LYRICA [Suspect]
     Active Substance: PREGABALIN
     Indication: Neuropathy peripheral
     Dosage: UNK
     Route: 048
  3. LYRICA [Suspect]
     Active Substance: PREGABALIN
     Dosage: 150 MG, 3X/DAY
     Route: 048
  4. DEPAKOTE [Concomitant]
     Active Substance: DIVALPROEX SODIUM
     Indication: Depression
     Dosage: 500 MG, 1X/DAY

REACTIONS (4)
  - Pollakiuria [Unknown]
  - Chronic obstructive pulmonary disease [Unknown]
  - Product prescribing error [Unknown]
  - Product dispensing error [Unknown]
